FAERS Safety Report 5198152-1 (Version None)
Quarter: 2006Q4

REPORT INFORMATION
  Report Type: 
  Country: None (occurrence: None)
  Receive Date: 20061228
  Receipt Date: 20061228
  Transmission Date: 20070319
  Serious: Yes (Hospitalization, Other)
  Sender: FDA-Public Use
  Company Number: None

PATIENT
  Sex: Female
  Weight: 11.7935 kg

DRUGS (1)
  1. AMOXICILLIN [Suspect]
     Indication: EAR INFECTION
     Dosage: 3/4 TEASPOON BID PO
     Route: 048
     Dates: start: 20061221, end: 20061226

REACTIONS (3)
  - RASH [None]
  - SYNCOPE [None]
  - URTICARIA [None]
